FAERS Safety Report 7900509-X (Version None)
Quarter: 2011Q4

REPORT INFORMATION
  Report Type: 
  Country: None (occurrence: None)
  Receive Date: 20111108
  Receipt Date: 20111027
  Transmission Date: 20120403
  Serious: Yes (Hospitalization, Other)
  Sender: FDA-Public Use
  Company Number: FR-BRISTOL-MYERS SQUIBB COMPANY-16203093

PATIENT
  Age: 68 Year
  Sex: Female

DRUGS (8)
  1. MODURETIC 5-50 [Concomitant]
  2. ALLOPURINOL [Concomitant]
  3. LOVENOX [Suspect]
     Indication: PULMONARY EMBOLISM
     Route: 058
     Dates: start: 20110207, end: 20110214
  4. ASPIRIN [Suspect]
     Indication: CEREBROVASCULAR ACCIDENT
     Route: 048
     Dates: start: 20110128, end: 20110214
  5. EFFEXOR [Concomitant]
  6. COLCHICINE [Concomitant]
     Indication: GOUT
  7. OMEPRAZOLE [Concomitant]
  8. COUMADIN [Suspect]
     Indication: PULMONARY EMBOLISM
     Route: 048
     Dates: start: 20110207, end: 20110214

REACTIONS (4)
  - GASTROINTESTINAL HAEMORRHAGE [None]
  - OESOPHAGEAL ULCER [None]
  - CYTOMEGALOVIRUS INFECTION [None]
  - ANAEMIA [None]
